FAERS Safety Report 6309546-2 (Version None)
Quarter: 2009Q3

REPORT INFORMATION
  Report Type: 
  Country: None (occurrence: None)
  Receive Date: 20090814
  Receipt Date: 20090804
  Transmission Date: 20100115
  Serious: Yes (Other)
  Sender: FDA-Public Use
  Company Number: US-JNJFOC-20090801827

PATIENT
  Sex: Female

DRUGS (1)
  1. MS MYLANTA GAS MINT [Suspect]
     Indication: FLATULENCE
     Route: 048

REACTIONS (1)
  - TOOTH EXTRACTION [None]
